FAERS Safety Report 10181230 (Version 2)
Quarter: 2014Q2

REPORT INFORMATION
  Report Type: Spontaneous
  Country: US (occurrence: US)
  Receive Date: 20140519
  Receipt Date: 20140530
  Transmission Date: 20141212
  Serious: Yes (Hospitalization, Other)
  Sender: FDA-Public Use
  Company Number: US-AMGEN INC.-USASP2014030826

PATIENT
  Age: 76 Year
  Sex: Female
  Weight: 62.59 kg

DRUGS (15)
  1. PROLIA [Suspect]
     Indication: SENILE OSTEOPOROSIS
     Dosage: UNK UNK, Q6MO
     Route: 065
     Dates: start: 201206
  2. NITROSTAT [Concomitant]
     Dosage: 0.41 AS DIRECTED
  3. CALCIUM CARBONATE [Concomitant]
     Dosage: 0.5 MG, BID
     Route: 048
  4. TOPROL [Concomitant]
     Dosage: 50 MG, QD
  5. LEVOTHYROXINE [Concomitant]
     Dosage: 75 MUG, QD BEFORE BREAKFAST
     Route: 048
  6. PREVACID [Concomitant]
     Dosage: 1 DF, QD
     Route: 048
  7. PROZAC [Concomitant]
     Dosage: 40 MG, QD
     Route: 048
  8. CALCITROL                          /00508501/ [Concomitant]
     Dosage: 0.25 MUG, QD
     Route: 048
  9. PRAVACHOL [Concomitant]
     Dosage: 40 MG, UNK EVERY NIGHT AT BEDTIME
     Route: 048
  10. COLACE [Concomitant]
     Dosage: 100 MG, QD
     Route: 048
  11. MYRBETRIQ [Concomitant]
     Dosage: 25 MG, QD
     Route: 048
  12. TRAZODONE [Concomitant]
     Dosage: 25 MG, EVERY NIGHT AT BEDTIME
     Route: 048
  13. NORVASC [Concomitant]
     Dosage: 5 MG, QD
     Route: 048
  14. CLOBETASOL 0.05% [Concomitant]
  15. TAB A VITE [Concomitant]
     Dosage: 1 DF, QD
     Route: 048

REACTIONS (7)
  - Spinal fusion surgery [Unknown]
  - Paraesthesia oral [Unknown]
  - Muscle spasms [Unknown]
  - Parathyroid gland enlargement [Unknown]
  - Hypocalcaemia [Unknown]
  - Hyperparathyroidism secondary [Unknown]
  - Diarrhoea [Unknown]
